FAERS Safety Report 10846849 (Version 4)
Quarter: 2016Q1

REPORT INFORMATION
  Report Type: Spontaneous
  Country: JP (occurrence: JP)
  Receive Date: 20150220
  Receipt Date: 20160121
  Transmission Date: 20160525
  Serious: Yes (Death, Life-Threatening, Hospitalization, Other)
  Sender: FDA-Public Use
  Company Number: JP-ASTRAZENECA-2014SE77424

PATIENT
  Age: 79 Year
  Sex: Male
  Weight: 53 kg

DRUGS (20)
  1. ACINON [Concomitant]
     Active Substance: NIZATIDINE
     Route: 048
     Dates: start: 20140821, end: 201409
  2. LOXONIN [Concomitant]
     Active Substance: LOXOPROFEN SODIUM
     Route: 048
     Dates: start: 20120719, end: 201210
  3. LOXOPROFEN SODIUM [Concomitant]
     Active Substance: LOXOPROFEN SODIUM
     Route: 048
     Dates: start: 20120719
  4. CEFDITOREN PIVOXIL. [Concomitant]
     Active Substance: CEFDITOREN PIVOXIL
     Route: 048
     Dates: start: 20140904
  5. BYDUREON [Suspect]
     Active Substance: EXENATIDE
     Indication: TYPE 2 DIABETES MELLITUS
     Route: 058
     Dates: start: 20131210, end: 20140702
  6. FORXIGA [Suspect]
     Active Substance: DAPAGLIFLOZIN
     Indication: TYPE 2 DIABETES MELLITUS
     Route: 048
     Dates: start: 20140709, end: 20140914
  7. FLOMOX [Concomitant]
     Active Substance: CEFCAPENE PIVOXIL HYDROCHLORIDE HYDRATE
     Route: 048
     Dates: start: 20140730, end: 201409
  8. MERCAZOLE [Concomitant]
     Active Substance: CARBIMAZOLE
     Indication: HYPERTHYROIDISM
     Route: 048
     Dates: start: 20090713, end: 201409
  9. FOLIAMIN [Concomitant]
     Active Substance: FOLIC ACID
     Route: 065
     Dates: start: 20140919
  10. PILSICAINIDE HYDROCHLORIDE [Concomitant]
     Active Substance: PILSICAINIDE HYDROCHLORIDE
     Dosage: 100 MG, NR OF SEPARATE DOSAGES UNKNOWN, ON 25-FEB-2013, 17-MAY-2013, 05-AUG-2013 AND 02-SEP-2014
     Route: 048
  11. MEIACT [Concomitant]
     Active Substance: CEFDITOREN PIVOXIL
     Route: 048
     Dates: start: 20140904
  12. SUNRYTHM [Concomitant]
     Active Substance: PILSICAINIDE HYDROCHLORIDE
     Dosage: 100 MG/DAY, NR OF SEPARATE DOSAGES UNKNOWN, ON 25-FEB-2013, 17-MAY-2013, 05-AUG-2013 AND 02-SEP-2014
     Route: 048
  13. LOXONIN [Concomitant]
     Active Substance: LOXOPROFEN SODIUM
     Dosage: NUMBER OF DAILY USAGE SHEET UNKNOWN
     Route: 062
     Dates: start: 20140903
  14. FOLIC ACID. [Concomitant]
     Active Substance: FOLIC ACID
     Route: 065
  15. AVAPRO [Concomitant]
     Active Substance: IRBESARTAN
     Route: 065
  16. CEFCAPENE PIVOXIL HYDROCHLORIDE [Concomitant]
     Active Substance: CEFCAPENE PIVOXIL HYDROCHLORIDE
     Route: 048
     Dates: start: 20140730, end: 201409
  17. LOXOPROFEN SODIUM [Concomitant]
     Active Substance: LOXOPROFEN SODIUM
     Dosage: NUMBER OF DAILY USAGE SHEET UNKNOWN
     Route: 062
     Dates: start: 20140903
  18. METGLUCO [Suspect]
     Active Substance: METFORMIN HYDROCHLORIDE
     Indication: TYPE 2 DIABETES MELLITUS
     Route: 048
     Dates: start: 20121012, end: 20140916
  19. LIVALO [Concomitant]
     Active Substance: PITAVASTATIN CALCIUM
     Indication: DYSLIPIDAEMIA
     Route: 048
     Dates: start: 20131210, end: 201409
  20. LOXOPROFEN SODIUM [Concomitant]
     Active Substance: LOXOPROFEN SODIUM
     Route: 065
     Dates: start: 20140906

REACTIONS (16)
  - Hyperlactacidaemia [Recovering/Resolving]
  - Headache [Not Recovered/Not Resolved]
  - Malaise [Unknown]
  - Neck pain [Not Recovered/Not Resolved]
  - Hypophagia [Not Recovered/Not Resolved]
  - Weight decreased [Unknown]
  - Metastasis [Unknown]
  - Sepsis [Unknown]
  - Cough [Unknown]
  - Dehydration [Fatal]
  - Acute kidney injury [Fatal]
  - Shock [Unknown]
  - Disseminated intravascular coagulation [Fatal]
  - Pancreatic carcinoma [Unknown]
  - Chest discomfort [Not Recovered/Not Resolved]
  - Abdominal pain [Unknown]

NARRATIVE: CASE EVENT DATE: 20140915
